FAERS Safety Report 4719808-8 (Version None)
Quarter: 2005Q3

REPORT INFORMATION
  Report Type: 
  Country: None (occurrence: None)
  Receive Date: 20050721
  Receipt Date: 20041111
  Transmission Date: 20060218
  Serious: No
  Sender: FDA-Public Use
  Company Number: US-GLAXOSMITHKLINE-A0533587A

PATIENT
  Age: 68 Year
  Sex: Female

DRUGS (2)
  1. AVANDIA [Suspect]
     Dosage: 2MG PER DAY
     Route: 048
     Dates: start: 20020101
  2. METFORMIN [Concomitant]

REACTIONS (5)
  - DYSPNOEA [None]
  - FATIGUE [None]
  - HYPERTROPHY BREAST [None]
  - INFLAMMATION [None]
  - WEIGHT INCREASED [None]
